FAERS Safety Report 20277314 (Version 1)
Quarter: 2022Q1

REPORT INFORMATION
  Report Type: Report from Study
  Country: US (occurrence: US)
  Receive Date: 20220102
  Receipt Date: 20220102
  Transmission Date: 20220423
  Serious: Yes (Other)
  Sender: FDA-Public Use
  Company Number: US-BIOGEN-2021BI01081934

PATIENT
  Age: 50 Year
  Sex: Female
  Weight: 113.9 kg

DRUGS (20)
  1. TECFIDERA [Suspect]
     Active Substance: DIMETHYL FUMARATE
     Indication: Multiple sclerosis
     Route: 065
     Dates: end: 202101
  2. TECFIDERA [Suspect]
     Active Substance: DIMETHYL FUMARATE
     Route: 048
     Dates: start: 20150529
  3. TECFIDERA [Suspect]
     Active Substance: DIMETHYL FUMARATE
     Route: 048
  4. TECFIDERA [Suspect]
     Active Substance: DIMETHYL FUMARATE
     Indication: Multiple sclerosis
     Route: 065
  5. ASPIRIN [Concomitant]
     Active Substance: ASPIRIN
     Indication: Product used for unknown indication
     Dosage: BY MOUTH EVERY DAY
     Route: 048
  6. FLEXERIL [Concomitant]
     Active Substance: CYCLOBENZAPRINE HYDROCHLORIDE
     Indication: Product used for unknown indication
     Route: 048
     Dates: start: 20211217
  7. NEURONTIN [Concomitant]
     Active Substance: GABAPENTIN
     Indication: Product used for unknown indication
     Route: 048
     Dates: start: 20211217
  8. GLUCOTROL [Concomitant]
     Active Substance: GLIPIZIDE
     Indication: Product used for unknown indication
     Route: 048
  9. NORCO [Concomitant]
     Active Substance: ACETAMINOPHEN\HYDROCODONE BITARTRATE
     Indication: Product used for unknown indication
     Dosage: 10 -325 MG
     Route: 048
     Dates: start: 20211217
  10. LISINOPRIL [Concomitant]
     Active Substance: LISINOPRIL
     Indication: Product used for unknown indication
     Route: 048
     Dates: start: 20211203
  11. MOBIC [Concomitant]
     Active Substance: MELOXICAM
     Indication: Product used for unknown indication
     Route: 048
     Dates: start: 20211217
  12. MOBIC [Concomitant]
     Active Substance: MELOXICAM
     Route: 048
  13. NYSTATIN (MYCOSTATIN) [Concomitant]
     Indication: Product used for unknown indication
     Route: 065
     Dates: start: 20211203
  14. NYSTATIN (MYCOSTATIN) [Concomitant]
     Route: 048
  15. IMITREX [Concomitant]
     Active Substance: SUMATRIPTAN SUCCINATE
     Indication: Product used for unknown indication
     Route: 048
  16. IMITREX [Concomitant]
     Active Substance: SUMATRIPTAN SUCCINATE
     Route: 048
  17. TOPAMAX [Concomitant]
     Active Substance: TOPIRAMATE
     Indication: Product used for unknown indication
     Route: 048
     Dates: start: 20211217
  18. TOPAMAX [Concomitant]
     Active Substance: TOPIRAMATE
     Route: 048
  19. VITAMIN C [Concomitant]
     Active Substance: ASCORBIC ACID
     Indication: Product used for unknown indication
     Route: 048
  20. VITAMIN C [Concomitant]
     Active Substance: ASCORBIC ACID
     Route: 048

REACTIONS (6)
  - Musculoskeletal disorder [Unknown]
  - Diabetes mellitus [Unknown]
  - Nephrolithiasis [Unknown]
  - Decreased gait velocity [Unknown]
  - Muscular weakness [Unknown]
  - Procedural pain [Unknown]

NARRATIVE: CASE EVENT DATE: 20200820
